FAERS Safety Report 11565493 (Version 1)
Quarter: 2015Q3

REPORT INFORMATION
  Report Type: Spontaneous
  Country: US (occurrence: US)
  Receive Date: 20150928
  Receipt Date: 20150928
  Transmission Date: 20151125
  Serious: No
  Sender: FDA-Public Use
  Company Number: US-OTSUKA-US-2014-10389

PATIENT
  Age: 48 Year
  Sex: Female
  Weight: 81.6 kg

DRUGS (1)
  1. ABILIFY MAINTENA [Suspect]
     Active Substance: ARIPIPRAZOLE
     Indication: PSYCHOTIC DISORDER
     Dosage: 400 MG, SINGLE
     Dates: start: 20140206

REACTIONS (4)
  - Inappropriate schedule of drug administration [Unknown]
  - Anxiety [Unknown]
  - Off label use [Unknown]
  - Akathisia [Not Recovered/Not Resolved]

NARRATIVE: CASE EVENT DATE: 20140226
